FAERS Safety Report 8730190 (Version 2)
Quarter: 2012Q4

REPORT INFORMATION
  Report Type: 
  Country: DE (occurrence: DE)
  Receive Date: 20120817
  Receipt Date: 20121023
  Transmission Date: 20130627
  Serious: Yes (Life-Threatening, Hospitalization)
  Sender: FDA-Public Use
  Company Number: DE-BRISTOL-MYERS SQUIBB COMPANY-16846511

PATIENT
  Age: 55 Year
  Sex: Male
  Weight: 76 kg

DRUGS (3)
  1. ABILIFY TABS 10 MG [Suspect]
     Indication: SCHIZOPHRENIA
     Route: 048
     Dates: start: 201005, end: 20120206
  2. ABILIFY TABS 10 MG [Suspect]
     Indication: BIPOLAR DISORDER
     Route: 048
     Dates: start: 201005, end: 20120206
  3. MIRTAZAPINE [Suspect]
     Route: 048

REACTIONS (3)
  - Pulmonary embolism [Not Recovered/Not Resolved]
  - Deep vein thrombosis [Not Recovered/Not Resolved]
  - Diarrhoea [Recovered/Resolved]
